FAERS Safety Report 6624855-5 (Version None)
Quarter: 2010Q1

REPORT INFORMATION
  Report Type: 
  Country: None (occurrence: None)
  Receive Date: 20100223
  Receipt Date: 20091116
  Transmission Date: 20100710
  Serious: No
  Sender: FDA-Public Use
  Company Number: 8054687

PATIENT
  Sex: Female
  Weight: 77.2 kg

DRUGS (8)
  1. CERTOLIZUMAB PEGOL (UCB, INC) [Suspect]
     Indication: CROHN'S DISEASE
     Dosage: SUBCUTANEOUS
     Route: 058
     Dates: start: 20091021
  2. PENTASA [Concomitant]
  3. PREDNISONE [Concomitant]
  4. TRAMADOL HCL [Concomitant]
  5. LISINOPRIL [Concomitant]
  6. MELOXICAM [Concomitant]
  7. FISH OIL [Concomitant]
  8. MULTI-VITAMIN [Concomitant]

REACTIONS (4)
  - ARTHRALGIA [None]
  - BODY TEMPERATURE INCREASED [None]
  - INJECTION SITE REACTION [None]
  - URINARY TRACT INFECTION [None]
